FAERS Safety Report 14971301 (Version 1)
Quarter: 2018Q2

REPORT INFORMATION
  Report Type: Spontaneous
  Country: US (occurrence: US)
  Receive Date: 20180604
  Receipt Date: 20180604
  Transmission Date: 20180711
  Serious: No
  Sender: FDA-Public Use
  Company Number: US-ACTELION-A-NJ2018-172329

PATIENT
  Age: 66 Year
  Sex: Female

DRUGS (1)
  1. VALCHLOR [Suspect]
     Active Substance: MECHLORETHAMINE
     Indication: MYCOSIS FUNGOIDES
     Dosage: UNK
     Route: 061
     Dates: start: 20180416

REACTIONS (6)
  - Blister [Unknown]
  - Rash macular [Unknown]
  - Skin discolouration [Unknown]
  - Application site pruritus [Not Recovered/Not Resolved]
  - Dermatitis allergic [Unknown]
  - Application site erythema [Not Recovered/Not Resolved]
